FAERS Safety Report 9735469 (Version 1)
Quarter: 2013Q4

REPORT INFORMATION
  Report Type: Spontaneous
  Country: US (occurrence: US)
  Receive Date: 20131206
  Receipt Date: 20131206
  Transmission Date: 20140711
  Serious: No
  Sender: FDA-Public Use
  Company Number: US-GILEAD-2009-0023220

PATIENT
  Sex: Female

DRUGS (12)
  1. LETAIRIS [Suspect]
     Indication: PULMONARY ARTERIAL HYPERTENSION
     Route: 048
     Dates: start: 20090224
  2. COREG CR [Concomitant]
  3. COUMADIN [Concomitant]
  4. METOCLOPRAMIDE [Concomitant]
  5. METHYLPREDNISONE [Concomitant]
  6. LUNESTA [Concomitant]
  7. ZANTAC [Concomitant]
  8. PRILOSEC [Concomitant]
  9. NEXIUM [Concomitant]
  10. XIFAXAN [Concomitant]
  11. FOLTX [Concomitant]
  12. FERROUS SULFATE [Concomitant]

REACTIONS (1)
  - Restless legs syndrome [Unknown]
